FAERS Safety Report 17825501 (Version 3)
Quarter: 2020Q2

REPORT INFORMATION
  Report Type: Report from Study
  Country: US (occurrence: US)
  Receive Date: 20200526
  Receipt Date: 20200618
  Transmission Date: 20200714
  Serious: No
  Sender: FDA-Public Use
  Company Number: NVSC2020US143591

PATIENT
  Sex: Female

DRUGS (2)
  1. COSENTYX [Suspect]
     Active Substance: SECUKINUMAB
     Indication: PRODUCT USED FOR UNKNOWN INDICATION
     Dosage: 150 MG, QW
     Route: 058
  2. COSENTYX [Suspect]
     Active Substance: SECUKINUMAB
     Route: 058

REACTIONS (7)
  - Injection site haemorrhage [Unknown]
  - Accidental exposure to product [Unknown]
  - Muscle spasms [Unknown]
  - Diarrhoea [Unknown]
  - Device malfunction [Unknown]
  - Incorrect dose administered [Unknown]
  - Frequent bowel movements [Unknown]
